FAERS Safety Report 10740932 (Version 1)
Quarter: 2015Q1

REPORT INFORMATION
  Report Type: Spontaneous
  Country: US (occurrence: US)
  Receive Date: 20150127
  Receipt Date: 20150127
  Transmission Date: 20150721
  Serious: Yes (Other)
  Sender: FDA-Public Use
  Company Number: US-AMGEN-USASP2015006036

PATIENT
  Age: 74 Year
  Sex: Female

DRUGS (1)
  1. PROLIA [Suspect]
     Active Substance: DENOSUMAB
     Indication: OSTEOPENIA
     Route: 065

REACTIONS (5)
  - Hip arthroplasty [Unknown]
  - Paranoia [Unknown]
  - Polymyalgia rheumatica [Unknown]
  - Off label use [Unknown]
  - Tooth disorder [Unknown]
